FAERS Safety Report 19394056 (Version 1)
Quarter: 2021Q2

REPORT INFORMATION
  Report Type: Spontaneous
  Country: US (occurrence: US)
  Receive Date: 20210609
  Receipt Date: 20210609
  Transmission Date: 20210717
  Serious: No
  Sender: FDA-Public Use
  Company Number: US-TEVA-2021-US-1918825

PATIENT
  Age: 80 Year
  Sex: Female

DRUGS (4)
  1. QVAR REDIHALER [Suspect]
     Active Substance: BECLOMETHASONE DIPROPIONATE
     Indication: ASTHMA
     Dosage: 4 INHALATIONS 2 TIMES DAILY
     Dates: start: 20210525
  2. QVAR REDIHALER [Suspect]
     Active Substance: BECLOMETHASONE DIPROPIONATE
     Dosage: 4 INHALATIONS 2 TIMES DAILY
     Dates: start: 20210526
  3. AMLODIPINE [Concomitant]
     Active Substance: AMLODIPINE BESYLATE
  4. VITAMIN D [Concomitant]
     Active Substance: VITAMIN D NOS

REACTIONS (3)
  - Feeling abnormal [Recovering/Resolving]
  - Hypersensitivity [Unknown]
  - Cough [Recovering/Resolving]

NARRATIVE: CASE EVENT DATE: 202105
